FAERS Safety Report 14411868 (Version 1)
Quarter: 2018Q1

REPORT INFORMATION
  Report Type: Spontaneous
  Country: US (occurrence: US)
  Receive Date: 20180117
  Receipt Date: 20180117
  Transmission Date: 20180509
  Serious: Yes (Other)
  Sender: FDA-Public Use
  Company Number: None

PATIENT
  Age: 50 Year
  Sex: Male

DRUGS (3)
  1. DIANEAL LOW CALCIUM PERITONEAL DIALYSIS SOLUTION WITH DEXTROSE [Suspect]
     Active Substance: CALCIUM CHLORIDE\DEXTROSE\MAGNESIUM CHLORIDE\SODIUM CHLORIDE\SODIUM LACTATE
     Indication: PERITONEAL DIALYSIS
     Dates: start: 20170601, end: 20180117
  2. ANTIMICROBIAL LIQ SOAP 16 OZ (BENZALKONIUM CHLORIDE) [Suspect]
     Active Substance: BENZALKONIUM CHLORIDE
     Dates: start: 20170825, end: 20180117
  3. ANIOSGEL 85 NPC [Suspect]
     Active Substance: ALCOHOL

REACTIONS (2)
  - Mycobacterium abscessus infection [None]
  - Device related infection [None]

NARRATIVE: CASE EVENT DATE: 20171205
